FAERS Safety Report 7244940-7 (Version None)
Quarter: 2011Q1

REPORT INFORMATION
  Report Type: 
  Country: None (occurrence: None)
  Receive Date: 20110126
  Receipt Date: 20110111
  Transmission Date: 20110831
  Serious: Yes (Other)
  Sender: FDA-Public Use
  Company Number: DE-ELI_LILLY_AND_COMPANY-DE201101002562

PATIENT
  Sex: Female

DRUGS (2)
  1. CALCIUM [Concomitant]
     Dosage: UNK, UNKNOWN
     Route: 065
  2. FORTEO [Suspect]
     Indication: OSTEOPOROSIS
     Dosage: UNK, UNK
     Dates: start: 20100427

REACTIONS (3)
  - WEIGHT DECREASED [None]
  - ARRHYTHMIA [None]
  - EXTRASYSTOLES [None]
